FAERS Safety Report 18479845 (Version 4)
Quarter: 2020Q4

REPORT INFORMATION
  Report Type: Spontaneous
  Country: US (occurrence: US)
  Receive Date: 20201109
  Receipt Date: 20201208
  Transmission Date: 20210114
  Serious: Yes (Hospitalization, Other)
  Sender: FDA-Public Use
  Company Number: US-UNITED THERAPEUTICS-UNT-2020-017233

PATIENT
  Age: 71 Year
  Sex: Male

DRUGS (5)
  1. REMODULIN [Suspect]
     Active Substance: TREPROSTINIL
     Dosage: UNK, CONTINUING
     Route: 058
     Dates: start: 20201008
  2. REMODULIN [Suspect]
     Active Substance: TREPROSTINIL
     Dosage: 0.0162 ?G/KG, CONTINUING
     Route: 058
     Dates: start: 2020
  3. REMODULIN [Suspect]
     Active Substance: TREPROSTINIL
     Dosage: 0.0143 ?G/KG, CONTINUING
     Route: 058
     Dates: start: 2020
  4. REMODULIN [Suspect]
     Active Substance: TREPROSTINIL
     Dosage: 0.0387 ?G/KG, CONTINUING
     Route: 058
     Dates: start: 2020
  5. REMODULIN [Suspect]
     Active Substance: TREPROSTINIL
     Indication: PULMONARY ARTERIAL HYPERTENSION
     Dosage: UNK, CONTINUING
     Route: 058
     Dates: start: 20200930

REACTIONS (10)
  - Fluid retention [Unknown]
  - Flushing [Unknown]
  - Loss of consciousness [Unknown]
  - Fall [Recovered/Resolved with Sequelae]
  - Dysstasia [Unknown]
  - Headache [Unknown]
  - Dyspnoea [Unknown]
  - Oxygen saturation decreased [Recovering/Resolving]
  - Diarrhoea [Recovering/Resolving]
  - Weight increased [Unknown]

NARRATIVE: CASE EVENT DATE: 2020
